FAERS Safety Report 5985918-0 (Version None)
Quarter: 2008Q4

REPORT INFORMATION
  Report Type: 
  Country: None (occurrence: None)
  Receive Date: 20081208
  Receipt Date: 20081208
  Transmission Date: 20090506
  Serious: Yes (Other)
  Sender: FDA-Public Use
  Company Number: None

PATIENT
  Age: 57 Year
  Sex: Female
  Weight: 65 kg

DRUGS (1)
  1. ACTONEL [Suspect]
     Indication: OSTEOPENIA
     Dosage: 35MG WEEKLY PO
     Route: 048
     Dates: start: 20081115, end: 20081115

REACTIONS (8)
  - BACK PAIN [None]
  - BONE PAIN [None]
  - HEADACHE [None]
  - MOVEMENT DISORDER [None]
  - NECK PAIN [None]
  - OROPHARYNGEAL PAIN [None]
  - PAIN [None]
  - PAIN IN JAW [None]
